FAERS Safety Report 19990651 (Version 1)
Quarter: 2021Q4

REPORT INFORMATION
  Report Type: Spontaneous
  Country: US (occurrence: US)
  Receive Date: 20211024
  Receipt Date: 20211024
  Transmission Date: 20220304
  Serious: No
  Sender: FDA-Public Use
  Company Number: None

PATIENT
  Age: 37 Year
  Sex: Female
  Weight: 72.45 kg

DRUGS (1)
  1. CHANTIX [Suspect]
     Active Substance: VARENICLINE TARTRATE
     Dosage: ?          QUANTITY:56 TABLET(S);
     Route: 048

REACTIONS (3)
  - Mood altered [None]
  - Agitation [None]
  - Aggression [None]
